FAERS Safety Report 20090732 (Version 1)
Quarter: 2021Q4

REPORT INFORMATION
  Report Type: Spontaneous
  Country: US (occurrence: None)
  Receive Date: 20211119
  Receipt Date: 20211119
  Transmission Date: 20220303
  Serious: Yes (Hospitalization)
  Sender: FDA-Public Use
  Company Number: None

PATIENT
  Age: 25 Year
  Sex: Female
  Weight: 104.4 kg

DRUGS (1)
  1. TAXOL [Suspect]
     Active Substance: PACLITAXEL
     Dates: end: 20211028

REACTIONS (4)
  - Blindness transient [None]
  - Dizziness [None]
  - Cerebral infarction [None]
  - Sinus tachycardia [None]

NARRATIVE: CASE EVENT DATE: 20211105
